FAERS Safety Report 13787010 (Version 1)
Quarter: 2017Q3

REPORT INFORMATION
  Report Type: Spontaneous
  Country: US (occurrence: US)
  Receive Date: 20170725
  Receipt Date: 20170725
  Transmission Date: 20171127
  Serious: Yes (Hospitalization, Disabling, Other)
  Sender: FDA-Public Use
  Company Number: None

PATIENT
  Age: 65 Year
  Sex: Female
  Weight: 95.71 kg

DRUGS (8)
  1. NITROFURANTOIN MACROCRYSTALS [Suspect]
     Active Substance: NITROFURANTOIN
     Indication: URINARY TRACT INFECTION
     Dosage: NIGHTLY 1 CAPSULOE
     Route: 048
     Dates: start: 20161104, end: 20170130
  2. ASPIRIN. [Concomitant]
     Active Substance: ASPIRIN
  3. METOPROLOL. [Concomitant]
     Active Substance: METOPROLOL
  4. OMEPRAZOLE. [Concomitant]
     Active Substance: OMEPRAZOLE
  5. LOVASTATIN. [Concomitant]
     Active Substance: LOVASTATIN
  6. PREDNISONE. [Concomitant]
     Active Substance: PREDNISONE
  7. MYRBETRIQ [Concomitant]
     Active Substance: MIRABEGRON
  8. LOSARTIN [Concomitant]
     Active Substance: LOSARTAN

REACTIONS (6)
  - Vision blurred [None]
  - Dyspnoea [None]
  - Cough [None]
  - Fatigue [None]
  - Asthenia [None]
  - Hyperhidrosis [None]

NARRATIVE: CASE EVENT DATE: 20161104
